FAERS Safety Report 6474545-7 (Version None)
Quarter: 2009Q4

REPORT INFORMATION
  Report Type: 
  Country: None (occurrence: None)
  Receive Date: 20091204
  Receipt Date: 20091201
  Transmission Date: 20100525
  Serious: No
  Sender: FDA-Public Use
  Company Number: CA-EISAI INC.-E2020-05666-SPO-CA

PATIENT
  Age: 84 Year
  Sex: Female

DRUGS (2)
  1. ARICEPT [Suspect]
     Indication: DRUG USE FOR UNKNOWN INDICATION
     Dosage: UNKNOWN
     Route: 048
     Dates: end: 20091101
  2. RISPERDAL [Concomitant]

REACTIONS (2)
  - HALLUCINATION [None]
  - WITHDRAWAL SYNDROME [None]
